FAERS Safety Report 17370062 (Version 2)
Quarter: 2024Q3

REPORT INFORMATION
  Report Type: Report from Study
  Country: CA (occurrence: None)
  Receive Date: 20200205
  Receipt Date: 20240823
  Transmission Date: 20241017
  Serious: Yes (Hospitalization, Other)
  Sender: ORION
  Company Number: CA-ORION CORPORATION ORION PHARMA-TREX2020-0635

PATIENT
  Age: 42 Year
  Sex: Female
  Weight: 176 kg

DRUGS (24)
  1. METHOTREXATE [Suspect]
     Active Substance: METHOTREXATE
     Indication: Product used for unknown indication
  2. ACTEMRA [Suspect]
     Active Substance: TOCILIZUMAB
     Indication: Rheumatoid arthritis
  3. ACTEMRA [Suspect]
     Active Substance: TOCILIZUMAB
  4. ACTEMRA [Suspect]
     Active Substance: TOCILIZUMAB
  5. ACTEMRA [Suspect]
     Active Substance: TOCILIZUMAB
  6. ACTEMRA [Suspect]
     Active Substance: TOCILIZUMAB
  7. ACTEMRA [Suspect]
     Active Substance: TOCILIZUMAB
  8. RITUXAN [Suspect]
     Active Substance: RITUXIMAB
     Indication: Rheumatoid arthritis
  9. RITUXAN [Suspect]
     Active Substance: RITUXIMAB
  10. THYROGEN [Suspect]
     Active Substance: THYROTROPIN ALFA
     Indication: Product used for unknown indication
  11. RITUXIMAB [Suspect]
     Active Substance: RITUXIMAB
     Indication: Rheumatoid arthritis
  12. RITUXIMAB [Suspect]
     Active Substance: RITUXIMAB
  13. AMITRIPTYLINE [Concomitant]
     Active Substance: AMITRIPTYLINE
  14. BACLOFEN [Concomitant]
     Active Substance: BACLOFEN
     Indication: Muscle spasms
  15. FENTANYL [Concomitant]
     Active Substance: FENTANYL\FENTANYL CITRATE
     Indication: Pain
     Dosage: EVERY 3 DAYS
  16. FOLIC ACID [Concomitant]
     Active Substance: FOLIC ACID
  17. GABAPENTIN [Concomitant]
     Active Substance: GABAPENTIN
     Indication: Pain
  18. OMEPRAZOLE [Concomitant]
     Active Substance: OMEPRAZOLE
  19. PLAQUENIL [Concomitant]
     Active Substance: HYDROXYCHLOROQUINE SULFATE
  20. PREDNISONE [Concomitant]
     Active Substance: PREDNISONE
  21. RISEDRONATE SODIUM [Concomitant]
     Active Substance: RISEDRONATE SODIUM
  22. RISEDRONATE SODIUM [Concomitant]
     Active Substance: RISEDRONATE SODIUM
  23. ZANTAC [Concomitant]
     Active Substance: RANITIDINE HYDROCHLORIDE
  24. HYDROXYCHLOROQUINE SULFATE [Concomitant]
     Active Substance: HYDROXYCHLOROQUINE SULFATE

REACTIONS (41)
  - Drug ineffective [Not Recovered/Not Resolved]
  - Appendicitis [Not Recovered/Not Resolved]
  - Adrenal neoplasm [Not Recovered/Not Resolved]
  - Arthralgia [Not Recovered/Not Resolved]
  - Blood calcium decreased [Not Recovered/Not Resolved]
  - Arthritis [Not Recovered/Not Resolved]
  - Blood pressure diastolic decreased [Not Recovered/Not Resolved]
  - Blood pressure fluctuation [Not Recovered/Not Resolved]
  - Blood pressure increased [Not Recovered/Not Resolved]
  - Blood pressure systolic increased [Not Recovered/Not Resolved]
  - Body temperature increased [Not Recovered/Not Resolved]
  - Cellulitis [Not Recovered/Not Resolved]
  - Dizziness [Not Recovered/Not Resolved]
  - Eczema [Not Recovered/Not Resolved]
  - Fatigue [Not Recovered/Not Resolved]
  - Furuncle [Not Recovered/Not Resolved]
  - Heart rate decreased [Not Recovered/Not Resolved]
  - Hepatic enzyme increased [Not Recovered/Not Resolved]
  - Hypertension [Not Recovered/Not Resolved]
  - Hypotension [Not Recovered/Not Resolved]
  - Joint swelling [Not Recovered/Not Resolved]
  - Infection [Not Recovered/Not Resolved]
  - Lower respiratory tract infection [Not Recovered/Not Resolved]
  - Malaise [Not Recovered/Not Resolved]
  - Mass [Not Recovered/Not Resolved]
  - Musculoskeletal pain [Not Recovered/Not Resolved]
  - Neck mass [Not Recovered/Not Resolved]
  - Oropharyngeal pain [Not Recovered/Not Resolved]
  - Osteoarthritis [Not Recovered/Not Resolved]
  - Oxygen saturation decreased [Not Recovered/Not Resolved]
  - Pain [Not Recovered/Not Resolved]
  - Pain in extremity [Not Recovered/Not Resolved]
  - Peripheral swelling [Not Recovered/Not Resolved]
  - Pharyngeal swelling [Not Recovered/Not Resolved]
  - Pneumonia [Not Recovered/Not Resolved]
  - Rheumatoid arthritis [Not Recovered/Not Resolved]
  - Swelling [Not Recovered/Not Resolved]
  - Tendonitis [Not Recovered/Not Resolved]
  - Thyroid mass [Not Recovered/Not Resolved]
  - Tonsillitis [Not Recovered/Not Resolved]
  - Rotator cuff syndrome [Not Recovered/Not Resolved]
